FAERS Safety Report 8855843 (Version 1)
Quarter: 2012Q4

REPORT INFORMATION
  Report Type: Spontaneous
  Country: US (occurrence: None)
  Receive Date: 20121022
  Receipt Date: 20121022
  Transmission Date: 20130627
  Serious: Yes (Disabling)
  Sender: FDA-Public Use
  Company Number: None

PATIENT
  Age: 50 Year
  Sex: Female
  Weight: 90.72 kg

DRUGS (2)
  1. LOTEMAX [Suspect]
     Indication: DRY EYE SYNDROME
     Dosage: ONE DROP BID INTRAOCULAR
     Route: 031
  2. LOTEMAX [Suspect]
     Indication: SEASONAL ALLERGY
     Dosage: ONE DROP BID INTRAOCULAR
     Route: 031

REACTIONS (1)
  - Glaucoma [None]
